FAERS Safety Report 5048802-5 (Version None)
Quarter: 2006Q3

REPORT INFORMATION
  Report Type: 
  Country: None (occurrence: None)
  Receive Date: 20060705
  Receipt Date: 20060612
  Transmission Date: 20061208
  Serious: Yes (Death)
  Sender: FDA-Public Use
  Company Number: AU200606004436

PATIENT
  Sex: Male

DRUGS (1)
  1. XIGRIS [Suspect]
     Indication: MENINGOCOCCAL SEPSIS
     Dates: start: 20060601

REACTIONS (1)
  - SUBARACHNOID HAEMORRHAGE [None]
